FAERS Safety Report 4428594-0 (Version None)
Quarter: 2004Q3

REPORT INFORMATION
  Report Type: 
  Country: None (occurrence: None)
  Receive Date: 20040816
  Receipt Date: 20040803
  Transmission Date: 20050211
  Serious: Yes (Other)
  Sender: FDA-Public Use
  Company Number: 24830

PATIENT
  Age: 60 Year
  Sex: Female

DRUGS (2)
  1. ALDARA [Suspect]
     Indication: BASAL CELL CARCINOMA
     Dosage: (2 SACHETS, 1 IN 1DAY (S), TOPICAL)
     Route: 061
     Dates: start: 20040301, end: 20040401
  2. ENDOCET [Suspect]
     Dosage: (1 AS NECESSARY)
     Dates: start: 20040301

REACTIONS (10)
  - ALOPECIA [None]
  - APPLICATION SITE OEDEMA [None]
  - APPLICATION SITE PAIN [None]
  - EYE IRRITATION [None]
  - EYE PAIN [None]
  - INFLUENZA LIKE ILLNESS [None]
  - INTRAOCULAR PRESSURE INCREASED [None]
  - IRIS DISORDER [None]
  - LACRIMATION INCREASED [None]
  - VISUAL FIELD DEFECT [None]
